FAERS Safety Report 4883033-0 (Version None)
Quarter: 2005Q4

REPORT INFORMATION
  Report Type: 
  Country: None (occurrence: None)
  Receive Date: 20051201
  Receipt Date: 20050831
  Transmission Date: 20060501
  Serious: No
  Sender: FDA-Public Use
  Company Number: 2005PV001775

PATIENT
  Age: 68 Year
  Sex: Female
  Weight: 86.1834 kg

DRUGS (10)
  1. BYETTA [Suspect]
     Indication: DIABETES MELLITUS NON-INSULIN-DEPENDENT
     Dosage: 5 MCG; BID; SC
     Route: 058
     Dates: start: 20050818
  2. LANTUS [Concomitant]
  3. SYNTHROID [Concomitant]
  4. AXID AR [Concomitant]
  5. VERAPAMIL [Concomitant]
  6. COUMADIN [Concomitant]
  7. ALTACE [Concomitant]
  8. LIPITOR [Concomitant]
  9. LANTUS [Concomitant]
  10. DIGOXIN [Concomitant]

REACTIONS (3)
  - ASTHENIA [None]
  - BLOOD GLUCOSE INCREASED [None]
  - HYPERSOMNIA [None]
